FAERS Safety Report 16824788 (Version 2)
Quarter: 2019Q3

REPORT INFORMATION
  Report Type: Report from Study
  Country: JP (occurrence: JP)
  Receive Date: 20190918
  Receipt Date: 20190927
  Transmission Date: 20191005
  Serious: Yes (Death, Life-Threatening, Hospitalization, Other)
  Sender: FDA-Public Use
  Company Number: JP-BRISTOL-MYERS SQUIBB COMPANY-BMS-2019-088496

PATIENT
  Age: 67 Year
  Sex: Male
  Weight: 64.8 kg

DRUGS (10)
  1. SENNOSIDE A+B CALCIUM [Concomitant]
     Active Substance: SENNOSIDES A AND B
     Indication: CONSTIPATION
     Dosage: 12 MILLIGRAM
     Route: 048
     Dates: start: 20190502
  2. PREDONINE-1 [Concomitant]
     Active Substance: PREDNISOLONE ACETATE
     Indication: HEPATIC FUNCTION ABNORMAL
     Dosage: 60 MILLIGRAM, QD
     Route: 065
     Dates: start: 20190906
  3. NAIXAN [NAPROXEN] [Concomitant]
     Active Substance: NAPROXEN
     Indication: TUMOUR ASSOCIATED FEVER
     Dosage: 300 MILLIGRAM, QD
     Route: 048
     Dates: start: 20190823
  4. RACOL NF [Concomitant]
     Active Substance: AMINO ACIDS\DEXTROSE\ELECTROLYTES NOS\SOYBEAN OIL\VITAMINS
     Indication: NUTRITIONAL SUPPLEMENTATION
     Dosage: 800 MILLILITER, QD
     Route: 051
     Dates: start: 20190821
  5. NIVOLUMAB [Suspect]
     Active Substance: NIVOLUMAB
     Indication: OESOPHAGEAL CARCINOMA
     Dosage: 240 MILLIGRAM, Q2WK
     Route: 042
     Dates: start: 20190814, end: 20190830
  6. GLUCOSE [Concomitant]
     Active Substance: DEXTROSE
     Indication: HYPOGLYCAEMIA
     Dosage: 10 GRAM
     Route: 042
     Dates: start: 20190907
  7. TAKEPRON [Concomitant]
     Active Substance: LANSOPRAZOLE
     Indication: PROPHYLAXIS AGAINST GASTROINTESTINAL ULCER
     Dosage: 15 MILLIGRAM
     Route: 042
     Dates: start: 20190824
  8. CALONAL [Concomitant]
     Active Substance: ACETAMINOPHEN
     Indication: TUMOUR ASSOCIATED FEVER
     Dosage: 1 DOSAGE FORM
     Route: 048
     Dates: start: 20190821
  9. ELENTAL [Concomitant]
     Active Substance: AMINO ACIDS\CARBOHYDRATES\MINERALS\SOYBEAN OIL\VITAMINS
     Indication: NUTRITIONAL SUPPLEMENTATION
     Dosage: UNK
     Route: 065
     Dates: start: 20190908
  10. ZOSYN [Concomitant]
     Active Substance: PIPERACILLIN SODIUM\TAZOBACTAM SODIUM
     Indication: INFECTION PROPHYLAXIS
     Dosage: 4.5 GRAM
     Route: 042
     Dates: start: 20190906

REACTIONS (2)
  - Hepatitis fulminant [Fatal]
  - Hepatic function abnormal [Not Recovered/Not Resolved]

NARRATIVE: CASE EVENT DATE: 20190830
